FAERS Safety Report 12054302 (Version 1)
Quarter: 2016Q1

REPORT INFORMATION
  Report Type: Spontaneous
  Country: FR (occurrence: FR)
  Receive Date: 20160209
  Receipt Date: 20160209
  Transmission Date: 20160526
  Serious: Yes (Death, Life-Threatening, Hospitalization)
  Sender: FDA-Public Use
  Company Number: FR-PFIZER INC-2016072800

PATIENT
  Age: 61 Year
  Sex: Male
  Weight: 84 kg

DRUGS (8)
  1. EUPRESSYL [Concomitant]
     Active Substance: URAPIDIL
     Dosage: 60 MG, ONCE PER 12 HOURS
  2. AMLOR [Concomitant]
     Active Substance: AMLODIPINE BESYLATE
     Dosage: 10 MG, 1X/DAY
  3. TENORMIN [Suspect]
     Active Substance: ATENOLOL
     Dosage: ONCE
     Route: 048
     Dates: start: 20160119, end: 20160119
  4. PROPOFOL. [Suspect]
     Active Substance: PROPOFOL
     Dosage: 100 MG AT 16:15 AND 150 MG AT 16:30
     Route: 042
     Dates: start: 20160119
  5. FORTRANS [Concomitant]
     Dosage: ONCE
     Dates: start: 20160118
  6. PRIMPERAN [Suspect]
     Active Substance: METOCLOPRAMIDE HYDROCHLORIDE
     Dosage: ONCE
     Route: 042
     Dates: start: 20160119, end: 20160119
  7. EPHEDRINE. [Suspect]
     Active Substance: EPHEDRINE
     Dosage: 9 MG AT 16:30 AND 6 MG AT 16:35
     Route: 042
     Dates: start: 20160119, end: 20160119
  8. LANZOR [Concomitant]
     Active Substance: LANSOPRAZOLE

REACTIONS (1)
  - Cardio-respiratory arrest [Fatal]

NARRATIVE: CASE EVENT DATE: 20160119
